FAERS Safety Report 20638039 (Version 3)
Quarter: 2022Q2

REPORT INFORMATION
  Report Type: Spontaneous
  Country: DE (occurrence: DE)
  Receive Date: 20220325
  Receipt Date: 20220411
  Transmission Date: 20220721
  Serious: Yes (Hospitalization)
  Sender: FDA-Public Use
  Company Number: DE-NOVARTISPH-NVSC2022DE067702

PATIENT
  Age: 74 Year
  Sex: Female

DRUGS (15)
  1. PRAMIPEXOLE [Suspect]
     Active Substance: PRAMIPEXOLE
     Indication: Parkinson^s disease
     Dosage: 1.05 MG, QD
     Route: 048
     Dates: start: 2004, end: 20201121
  2. XADAGO [Suspect]
     Active Substance: SAFINAMIDE MESYLATE
     Indication: Parkinson^s disease
     Dosage: 50 MG, QD
     Route: 048
     Dates: start: 20200123, end: 20201121
  3. XADAGO [Suspect]
     Active Substance: SAFINAMIDE MESYLATE
     Dosage: 50 MG, QD
     Route: 048
     Dates: start: 20201210
  4. AMANTADINE SULFATE [Suspect]
     Active Substance: AMANTADINE SULFATE
     Indication: Parkinson^s disease
     Dosage: 200 MG, QD
     Route: 048
     Dates: start: 2004, end: 20201121
  5. AMANTADINE SULFATE [Suspect]
     Active Substance: AMANTADINE SULFATE
     Dosage: 100 MG, QD
     Route: 048
     Dates: start: 20201210
  6. PIRIBEDIL [Suspect]
     Active Substance: PIRIBEDIL
     Indication: Parkinson^s disease
     Dosage: 100 MG, QD
     Route: 048
     Dates: start: 2004, end: 20201121
  7. PIRIBEDIL [Suspect]
     Active Substance: PIRIBEDIL
     Dosage: 50 MG, QD
     Route: 048
     Dates: start: 20201119, end: 20201121
  8. CARBIDOPA\LEVODOPA [Concomitant]
     Active Substance: CARBIDOPA\LEVODOPA
     Indication: Parkinson^s disease
     Dosage: 3 DOSAGE FORM, QD (0.5 DF, 6/DAY)
     Route: 048
     Dates: start: 2017, end: 202011
  9. CARBIDOPA\LEVODOPA [Concomitant]
     Active Substance: CARBIDOPA\LEVODOPA
     Dosage: 1 DOSAGE FORM, QD
     Route: 048
     Dates: start: 2017, end: 202011
  10. PREGABALIN [Concomitant]
     Active Substance: PREGABALIN
     Indication: Neuralgia
     Dosage: 25 MG, QD
     Route: 048
     Dates: start: 20200122
  11. PREGABALIN [Concomitant]
     Active Substance: PREGABALIN
     Dosage: 25 MG, QD
     Route: 048
     Dates: start: 20201022
  12. RIVASTIGMINE [Concomitant]
     Active Substance: RIVASTIGMINE
     Indication: Hypercholesterolaemia
     Dosage: 3 MG, QD
     Route: 048
     Dates: start: 20200527
  13. SIMVASTATIN [Concomitant]
     Active Substance: SIMVASTATIN
     Indication: Hypercholesterolaemia
     Dosage: 20 MG, QD
     Route: 048
     Dates: start: 2003
  14. QUETIAPINE [Concomitant]
     Active Substance: QUETIAPINE
     Indication: Depression
     Dosage: 25 MG, QD
     Route: 048
     Dates: start: 20200122
  15. ASPIRIN [Concomitant]
     Active Substance: ASPIRIN
     Indication: Platelet aggregation inhibition
     Dosage: 100 MG, QD
     Route: 048
     Dates: start: 2003

REACTIONS (4)
  - Fall [Recovered/Resolved]
  - Hallucination, visual [Recovered/Resolved]
  - Dyskinesia [Recovered/Resolved]
  - Labelled drug-drug interaction medication error [Unknown]

NARRATIVE: CASE EVENT DATE: 20200123
